FAERS Safety Report 5223739-7 (Version None)
Quarter: 2007Q1

REPORT INFORMATION
  Report Type: 
  Country: None (occurrence: None)
  Receive Date: 20070130
  Receipt Date: 20070125
  Transmission Date: 20070707
  Serious: Yes (Death, Other)
  Sender: FDA-Public Use
  Company Number: 2007UW01593

PATIENT
  Age: 67 Year
  Sex: Female

DRUGS (5)
  1. CRESTOR [Suspect]
     Indication: HYPERCHOLESTEROLAEMIA
     Route: 048
     Dates: start: 20060901
  2. EZETROL [Suspect]
     Route: 048
     Dates: start: 20060101
  3. BETA BLOCKER [Concomitant]
  4. ACE-INHIBITOR [Concomitant]
  5. OS-CAL [Concomitant]
     Indication: OSTEOPOROSIS

REACTIONS (2)
  - DEATH [None]
  - RENAL FAILURE ACUTE [None]
